FAERS Safety Report 8099017-8 (Version None)
Quarter: 2012Q1

REPORT INFORMATION
  Report Type: 
  Country: None (occurrence: None)
  Receive Date: 20120131
  Receipt Date: 20120126
  Transmission Date: 20120608
  Serious: Yes (Life-Threatening)
  Sender: FDA-Public Use
  Company Number: FR-ASTRAZENECA-2012SE05577

PATIENT
  Age: 81 Year
  Sex: Female

DRUGS (8)
  1. CANDESARTAN CILEXETIL AND HYDROCHLOROTHIAZIDE [Suspect]
     Indication: CARDIAC FAILURE CHRONIC
     Dosage: 16/12.5 MG DAILY
     Route: 048
     Dates: start: 20110101, end: 20111123
  2. ALDACTONE [Suspect]
     Indication: CARDIAC FAILURE
     Route: 048
     Dates: start: 20110101, end: 20111114
  3. PANTOPRAZOLE SODIUM [Suspect]
     Route: 048
     Dates: start: 20110101, end: 20111123
  4. BISOPROLOL ARROW [Suspect]
     Route: 048
     Dates: start: 20110101, end: 20111123
  5. EZETIMIBE [Suspect]
     Route: 048
     Dates: start: 20110101, end: 20111123
  6. LASIX [Concomitant]
  7. PREVISCAN [Suspect]
     Indication: ATRIAL FIBRILLATION
     Route: 048
     Dates: start: 20110101, end: 20111123
  8. SITAGLIPTIN PHOSPHATE [Suspect]
     Route: 048
     Dates: start: 20110101, end: 20111123

REACTIONS (3)
  - CIRCULATORY COLLAPSE [None]
  - RENAL FAILURE ACUTE [None]
  - HYPERKALAEMIA [None]
